FAERS Safety Report 4358257-1 (Version None)
Quarter: 2004Q2

REPORT INFORMATION
  Report Type: 
  Country: None (occurrence: None)
  Receive Date: 20040511
  Receipt Date: 20040511
  Transmission Date: 20050107
  Serious: Yes (Life-Threatening)
  Sender: FDA-Public Use
  Company Number: None

PATIENT
  Age: 52 Year
  Sex: Male
  Weight: 64 kg

DRUGS (10)
  1. LISINOPRIL [Suspect]
  2. ASPIRIN [Concomitant]
  3. RANITIDINE [Concomitant]
  4. CAPSAICIN  CREAM [Concomitant]
  5. FELODIPINE [Concomitant]
  6. METHYLPREDNISOLONE [Concomitant]
  7. DOXYCYCLINE [Concomitant]
  8. EPINEPHRINE AUTO INJECTOR [Concomitant]
  9. DIPHENHYDRAMINE HCL [Concomitant]
  10. PIROXICAM [Concomitant]

REACTIONS (1)
  - ANGIONEUROTIC OEDEMA [None]
